FAERS Safety Report 7564103-5 (Version None)
Quarter: 2011Q2

REPORT INFORMATION
  Report Type: 
  Country: None (occurrence: None)
  Receive Date: 20110622
  Receipt Date: 20110615
  Transmission Date: 20111010
  Serious: Yes (Hospitalization)
  Sender: FDA-Public Use
  Company Number: JP-B.I. PHARMACEUTICALS,INC./RIDGEFIELD-2011-BP-13289NB

PATIENT
  Sex: Male
  Weight: 54 kg

DRUGS (8)
  1. FAMOTIDINE [Concomitant]
     Indication: ABDOMINAL PAIN
     Dosage: 20 MG
     Route: 048
     Dates: start: 20090904, end: 20110531
  2. BIO-THREE [Concomitant]
     Indication: ABDOMINAL PAIN
     Route: 048
     Dates: start: 20090904, end: 20110531
  3. DISOPYRAMIDE PHOSPHATE [Concomitant]
     Indication: ABDOMINAL PAIN
     Route: 048
     Dates: start: 20090904, end: 20110531
  4. PRAVASTATIN SODIUM [Concomitant]
     Indication: ABDOMINAL PAIN
     Dosage: 10 MG
     Route: 048
     Dates: start: 20090904, end: 20110531
  5. MAGNESIUM OXIDE [Concomitant]
     Indication: ABDOMINAL PAIN
     Dosage: 990 MG
     Route: 048
     Dates: start: 20090904, end: 20110531
  6. HARNAL D [Concomitant]
     Indication: ABDOMINAL PAIN
     Dosage: 0.2 MG
     Route: 048
     Dates: start: 20090904, end: 20110531
  7. PRADAXA [Suspect]
     Indication: ATRIAL FIBRILLATION
     Dosage: 150 MG
     Route: 048
     Dates: start: 20110425, end: 20110502
  8. ASPIRIN [Concomitant]
     Indication: ABDOMINAL PAIN
     Dosage: 100 MG
     Route: 048
     Dates: start: 20090904, end: 20110531

REACTIONS (4)
  - CONVULSION [None]
  - PYREXIA [None]
  - CHOLELITHIASIS [None]
  - MYOCLONUS [None]
